FAERS Safety Report 4732009-2 (Version None)
Quarter: 2005Q3

REPORT INFORMATION
  Report Type: 
  Country: None (occurrence: None)
  Receive Date: 20050722
  Receipt Date: 20041130
  Transmission Date: 20060218
  Serious: Yes (Hospitalization)
  Sender: FDA-Public Use
  Company Number: 04-000867

PATIENT
  Age: 59 Year
  Sex: Female
  Weight: 61.2 kg

DRUGS (1)
  1. FEMHRT [Suspect]
     Indication: MENOPAUSAL SYMPTOMS
     Dosage: 5/1000UG QD, ORAL
     Route: 048
     Dates: start: 20010101, end: 20040821

REACTIONS (1)
  - CEREBROVASCULAR ACCIDENT [None]
